FAERS Safety Report 22181394 (Version 2)
Quarter: 2023Q2

REPORT INFORMATION
  Report Type: Spontaneous
  Country: US (occurrence: US)
  Receive Date: 20230406
  Receipt Date: 20230420
  Transmission Date: 20230722
  Serious: Yes (Hospitalization)
  Sender: FDA-Public Use
  Company Number: US-TEVA-2023-US-2872781

PATIENT
  Age: 90 Year
  Sex: Male

DRUGS (1)
  1. AMIODARONE [Suspect]
     Active Substance: AMIODARONE
     Indication: Atrial fibrillation
     Dosage: 400 MILLIGRAM DAILY; 200MG TWICE DAILY
     Route: 065

REACTIONS (2)
  - Myxoedema coma [Recovered/Resolved]
  - Cardiac failure acute [Recovered/Resolved]
